FAERS Safety Report 5739046-X (Version None)
Quarter: 2008Q2

REPORT INFORMATION
  Report Type: 
  Country: None (occurrence: None)
  Receive Date: 20080515
  Receipt Date: 20080514
  Transmission Date: 20081010
  Serious: Yes (Hospitalization, Other)
  Sender: FDA-Public Use
  Company Number: A0713139A

PATIENT
  Age: 60 Year
  Sex: Female
  Weight: 59.1 kg

DRUGS (6)
  1. ALLI [Suspect]
     Indication: WEIGHT LOSS DIET
     Route: 048
     Dates: start: 20080204, end: 20080225
  2. DIOVAN HCT [Concomitant]
     Indication: HYPERTENSION
     Route: 048
     Dates: start: 20030626
  3. SKELAXIN [Concomitant]
     Indication: BACK PAIN
     Route: 048
  4. EVISTA [Concomitant]
     Indication: OSTEOPOROSIS
     Route: 048
     Dates: start: 20060403
  5. ASPIRIN [Concomitant]
     Indication: CORONARY ARTERY STENOSIS
     Route: 048
     Dates: start: 20061226
  6. PRILOSEC [Concomitant]
     Route: 048
     Dates: start: 20051128

REACTIONS (8)
  - ABDOMINAL PAIN UPPER [None]
  - DEHYDRATION [None]
  - HYPOTENSION [None]
  - LOSS OF CONSCIOUSNESS [None]
  - PAIN [None]
  - SPINAL COMPRESSION FRACTURE [None]
  - STOMACH DISCOMFORT [None]
  - THORACIC VERTEBRAL FRACTURE [None]
